FAERS Safety Report 15791027 (Version 1)
Quarter: 2019Q1

REPORT INFORMATION
  Report Type: Spontaneous
  Country: US (occurrence: US)
  Receive Date: 20190104
  Receipt Date: 20190104
  Transmission Date: 20190417
  Serious: No
  Sender: FDA-Public Use
  Company Number: US-AMNEAL PHARMACEUTICALS-2018AMN00725

PATIENT
  Age: 63 Year
  Sex: Female
  Weight: 90.7 kg

DRUGS (5)
  1. DICLOFENAC SODIUM. [Suspect]
     Active Substance: DICLOFENAC SODIUM
     Indication: ARTHRALGIA
     Dosage: 4 G, 4X/DAY
     Route: 061
     Dates: start: 20181019
  2. OMEPRAZOLE. [Concomitant]
     Active Substance: OMEPRAZOLE
     Dosage: UNK
     Route: 065
  3. LISINOPRIL. [Concomitant]
     Active Substance: LISINOPRIL
     Dosage: UNK
     Route: 065
  4. PRAVASTATIN SODIUM. [Concomitant]
     Active Substance: PRAVASTATIN SODIUM
     Dosage: UNK
     Route: 065
  5. ASPIRIN. [Concomitant]
     Active Substance: ASPIRIN
     Dosage: UNK
     Route: 065

REACTIONS (3)
  - Pain [Recovered/Resolved]
  - Drug ineffective [Recovered/Resolved]
  - Erythema [Recovered/Resolved]

NARRATIVE: CASE EVENT DATE: 20181019
